FAERS Safety Report 18562408 (Version 2)
Quarter: 2020Q4

REPORT INFORMATION
  Report Type: Spontaneous
  Country: FR (occurrence: FR)
  Receive Date: 20201130
  Receipt Date: 20201204
  Transmission Date: 20210114
  Serious: Yes (Hospitalization, Other)
  Sender: FDA-Public Use
  Company Number: FR-AUROBINDO-AUR-APL-2020-027808

PATIENT
  Age: 60 Year
  Sex: Male
  Weight: 96 kg

DRUGS (9)
  1. IRINOTECAN [Suspect]
     Active Substance: IRINOTECAN
     Dosage: UNK, CYCLICAL
     Route: 042
     Dates: start: 20200116, end: 20200116
  2. FLUOROURACIL. [Suspect]
     Active Substance: FLUOROURACIL
     Indication: COLORECTAL CANCER METASTATIC
     Dosage: UNK, CYCLICAL
     Route: 042
     Dates: start: 20200113, end: 20200113
  3. FLUOROURACIL. [Suspect]
     Active Substance: FLUOROURACIL
     Dosage: UNK, CYCLICAL
     Route: 042
     Dates: start: 20200116, end: 20200116
  4. BUDESONIDE. [Concomitant]
     Active Substance: BUDESONIDE
     Indication: DIARRHOEA
     Dosage: UNK
     Route: 065
  5. AFLIBERCEPT [Suspect]
     Active Substance: AFLIBERCEPT
     Indication: COLORECTAL CANCER METASTATIC
     Dosage: UNK, CYCLICAL
     Route: 042
     Dates: start: 20200113, end: 20200113
  6. FOLINIC ACID [Suspect]
     Active Substance: LEUCOVORIN
     Indication: COLORECTAL CANCER METASTATIC
     Dosage: UNK, CYCLICAL
     Route: 042
     Dates: start: 20200113, end: 20200113
  7. FOLINIC ACID [Suspect]
     Active Substance: LEUCOVORIN
     Dosage: UNK, CYCLICAL
     Route: 042
     Dates: start: 20200116, end: 20200116
  8. AFLIBERCEPT [Suspect]
     Active Substance: AFLIBERCEPT
     Dosage: UNK, CYCLICAL
     Route: 042
     Dates: start: 20200116, end: 20200116
  9. IRINOTECAN [Suspect]
     Active Substance: IRINOTECAN
     Indication: COLORECTAL CANCER METASTATIC
     Dosage: UNK, CYCLICAL
     Route: 042
     Dates: start: 20200113, end: 20200113

REACTIONS (2)
  - Diarrhoea [Unknown]
  - Enterocolitis haemorrhagic [Recovered/Resolved]

NARRATIVE: CASE EVENT DATE: 20200511
